FAERS Safety Report 10108846 (Version 2)
Quarter: 2014Q2

REPORT INFORMATION
  Report Type: Spontaneous
  Country: GB (occurrence: GB)
  Receive Date: 20140425
  Receipt Date: 20140425
  Transmission Date: 20141212
  Serious: Yes (Other)
  Sender: FDA-Public Use
  Company Number: GB-ROCHE-1311535

PATIENT
  Sex: Female

DRUGS (3)
  1. HERCEPTIN [Suspect]
     Indication: PRODUCT USED FOR UNKNOWN INDICATION
     Route: 065
  2. PREDNISOLONE [Concomitant]
  3. SODIUM VALPROATE [Concomitant]

REACTIONS (7)
  - Pain in extremity [Not Recovered/Not Resolved]
  - Paraesthesia [Unknown]
  - Petit mal epilepsy [Unknown]
  - Insomnia [Unknown]
  - Diarrhoea [Unknown]
  - Tremor [Unknown]
  - Fatigue [Unknown]
